FAERS Safety Report 8312902-4 (Version None)
Quarter: 2012Q2

REPORT INFORMATION
  Report Type: 
  Country: None (occurrence: None)
  Receive Date: 20120424
  Receipt Date: 20120412
  Transmission Date: 20120825
  Serious: Yes (Hospitalization)
  Sender: FDA-Public Use
  Company Number: COL_11417_2012

PATIENT
  Sex: Male

DRUGS (3)
  1. COLGATE TOTAL [Suspect]
     Indication: DENTAL CARIES
     Dosage: COVERED WHOLE HEAD OF TOOTHBRUSH/ ONCE /  ORAL
     Route: 048
     Dates: start: 20120411, end: 20120411
  2. COLGATE TOTAL [Suspect]
     Indication: DENTAL PLAQUE
     Dosage: COVERED WHOLE HEAD OF TOOTHBRUSH/ ONCE /  ORAL
     Route: 048
     Dates: start: 20120411, end: 20120411
  3. COLGATE TOTAL [Suspect]
     Indication: GINGIVITIS
     Dosage: COVERED WHOLE HEAD OF TOOTHBRUSH/ ONCE /  ORAL
     Route: 048
     Dates: start: 20120411, end: 20120411

REACTIONS (1)
  - ANAPHYLACTIC SHOCK [None]
